FAERS Safety Report 7177908-X (Version None)
Quarter: 2010Q4

REPORT INFORMATION
  Report Type: 
  Country: None (occurrence: None)
  Receive Date: 20101220
  Receipt Date: 20101123
  Transmission Date: 20110411
  Serious: Yes (Hospitalization, Other)
  Sender: FDA-Public Use
  Company Number: US-BAYER-201038101NA

PATIENT
  Sex: Female
  Weight: 100 kg

DRUGS (25)
  1. YASMIN [Suspect]
     Dosage: UNK
     Dates: start: 20020101, end: 20070101
  2. YASMIN [Suspect]
     Indication: PREMENSTRUAL SYNDROME
  3. OCELLA [Suspect]
     Dosage: UNK
     Dates: start: 20020101, end: 20070101
  4. OCELLA [Suspect]
     Indication: PREMENSTRUAL SYNDROME
  5. YAZ [Suspect]
     Dosage: UNK
     Dates: start: 20020101, end: 20070101
  6. YAZ [Suspect]
     Indication: PREMENSTRUAL SYNDROME
  7. CEPHALEXIN [Concomitant]
     Dosage: 500 MG, UNK
     Route: 048
     Dates: start: 20071029
  8. CEPHALEXIN [Concomitant]
     Dosage: 500 MG, UNK
     Route: 048
     Dates: start: 20070110
  9. CEPHALEXIN [Concomitant]
     Dosage: 500 MG, UNK
     Route: 048
     Dates: start: 20080327
  10. ADVIL [Concomitant]
     Indication: MIGRAINE
  11. UNCODEABLE ^UNCLASSIFIABLE^ [Concomitant]
     Indication: MIGRAINE
  12. PROPOXYPHENE HYDROCHLORIDE [Concomitant]
     Dosage: UNK
     Route: 048
     Dates: start: 20031125
  13. PROPOXYPHENE HYDROCHLORIDE [Concomitant]
     Dosage: UNK
     Route: 048
     Dates: start: 20040710
  14. PROPOXYPHENE HYDROCHLORIDE [Concomitant]
     Dosage: UNK
     Route: 048
     Dates: start: 20040730
  15. PROPOXYPHENE HYDROCHLORIDE [Concomitant]
     Dosage: UNK
     Route: 048
     Dates: start: 20050506
  16. PROPOXYPHENE HYDROCHLORIDE [Concomitant]
     Dosage: UNK
     Route: 048
     Dates: start: 20050802
  17. PROPOXYPHENE HYDROCHLORIDE [Concomitant]
     Dosage: UNK
     Route: 048
     Dates: start: 20060208
  18. PHENTERMINE [Concomitant]
     Dosage: 30 MG, UNK
     Route: 048
     Dates: start: 20041020
  19. SPIRONOLACTONE [Concomitant]
     Dosage: 25 MG, UNK
     Route: 048
     Dates: start: 20041020
  20. TOURO LA-LD [Concomitant]
     Dosage: UNK
     Dates: start: 20041201
  21. CYCLOBENZAPRINE [Concomitant]
     Dosage: 10 MG, UNK
     Route: 048
     Dates: start: 20070811
  22. CYCLOBENZAPRINE [Concomitant]
     Dosage: 10 MG, UNK
     Route: 048
     Dates: start: 20040730
  23. CYCLOBENZAPRINE [Concomitant]
     Dosage: 10 MG, UNK
     Route: 048
     Dates: start: 20050506
  24. CYCLOBENZAPRINE [Concomitant]
     Dosage: 10 MG, UNK
     Route: 048
     Dates: start: 20050802
  25. NEXIUM [Concomitant]

REACTIONS (13)
  - ALOPECIA [None]
  - CARDIAC DISORDER [None]
  - CHOLECYSTITIS [None]
  - DECREASED APPETITE [None]
  - DRY MOUTH [None]
  - DYSPNOEA [None]
  - HEART RATE INCREASED [None]
  - INJURY [None]
  - MIGRAINE [None]
  - NAUSEA [None]
  - OESOPHAGITIS [None]
  - THIRST [None]
  - TREMOR [None]
